FAERS Safety Report 8914220 (Version 1)
Quarter: 2012Q4

REPORT INFORMATION
  Report Type: 
  Country: CA (occurrence: CA)
  Receive Date: 20121119
  Receipt Date: 20121119
  Transmission Date: 20130627
  Serious: Yes (Hospitalization, Other)
  Sender: FDA-Public Use
  Company Number: CA-AMGEN-CANSP2012073117

PATIENT
  Age: 84 Year
  Sex: Female

DRUGS (4)
  1. PROLIA [Suspect]
     Indication: OSTEOPOROSIS POSTMENOPAUSAL
     Dosage: UNK
     Dates: start: 20120411
  2. METOPROLOL [Concomitant]
  3. ASPIRIN [Concomitant]
  4. CALCIUM + VITAMIN D3 [Concomitant]

REACTIONS (6)
  - Cystitis [Unknown]
  - Convulsion [Unknown]
  - Speech disorder [Unknown]
  - Thinking abnormal [Unknown]
  - Cognitive disorder [Unknown]
  - Wheelchair user [Unknown]
